FAERS Safety Report 16175669 (Version 1)
Quarter: 2019Q2

REPORT INFORMATION
  Report Type: Spontaneous
  Country: US (occurrence: US)
  Receive Date: 20190409
  Receipt Date: 20190409
  Transmission Date: 20190711
  Serious: No
  Sender: FDA-Public Use
  Company Number: US-JNJFOC-20190304913

PATIENT
  Sex: Female
  Weight: 72.58 kg

DRUGS (1)
  1. TYLENOL EXTRA STRENGTH [Suspect]
     Active Substance: ACETAMINOPHEN
     Indication: ARTHRALGIA
     Dosage: 1 AND 1/2  EVERY 6 HOURS
     Route: 048

REACTIONS (3)
  - Malaise [Recovered/Resolved]
  - Nightmare [Not Recovered/Not Resolved]
  - Incorrect dose administered [Unknown]
